FAERS Safety Report 7307862-9 (Version None)
Quarter: 2011Q1

REPORT INFORMATION
  Report Type: 
  Country: None (occurrence: None)
  Receive Date: 20110223
  Receipt Date: 20110209
  Transmission Date: 20110831
  Serious: Yes (Hospitalization)
  Sender: FDA-Public Use
  Company Number: DE-JNJFOC-20110200880

PATIENT
  Sex: Male
  Weight: 103 kg

DRUGS (11)
  1. ALLOPURINOL [Concomitant]
     Route: 065
  2. LYRICA [Concomitant]
     Indication: PAIN
     Route: 065
  3. PALEXIA RETARD [Suspect]
     Indication: PAIN
     Route: 048
  4. METOBETA [Concomitant]
     Route: 065
  5. BEZAFIBRAT [Concomitant]
     Route: 065
  6. PALEXIA RETARD [Suspect]
     Route: 048
  7. ARCOXIA [Concomitant]
     Route: 065
  8. SIC-OPHTAL N [Concomitant]
     Route: 065
  9. DEHYDRO SANOL TRI [Concomitant]
     Route: 065
  10. HYDROCHLOROTHIAZIDE/RAMIPRIL [Concomitant]
     Route: 065
  11. PANTOPRAZOLE [Concomitant]
     Route: 065

REACTIONS (3)
  - DRUG INEFFECTIVE [None]
  - MONOPLEGIA [None]
  - PAIN IN EXTREMITY [None]
